FAERS Safety Report 8142867-X (Version None)
Quarter: 2012Q1

REPORT INFORMATION
  Report Type: 
  Country: None (occurrence: None)
  Receive Date: 20120216
  Receipt Date: 20120208
  Transmission Date: 20120608
  Serious: Yes (Other)
  Sender: FDA-Public Use
  Company Number: US-BRISTOL-MYERS SQUIBB COMPANY-16390072

PATIENT
  Age: 6 Year
  Sex: Female
  Weight: 22 kg

DRUGS (3)
  1. EMTRICITABINE [Suspect]
     Indication: HIV INFECTION
     Dosage: THERAPY ON 07NOV04
     Route: 048
     Dates: start: 20011114
  2. DIDANOSINE [Suspect]
     Indication: HIV INFECTION
     Dosage: THERAPY ON 07NOV04
     Route: 048
     Dates: start: 20011114
  3. EFAVIRENZ [Suspect]
     Indication: HIV INFECTION
     Dosage: THERAPY ON 07NOV04
     Route: 048
     Dates: start: 20011114

REACTIONS (1)
  - NEUTROPHIL COUNT DECREASED [None]
